FAERS Safety Report 8986206 (Version 1)
Quarter: 2012Q4

REPORT INFORMATION
  Report Type: Spontaneous
  Country: US (occurrence: None)
  Receive Date: 20121031
  Receipt Date: 20121031
  Transmission Date: 20130627
  Serious: Yes (Hospitalization)
  Sender: FDA-Public Use
  Company Number: 2012-1129

PATIENT
  Age: 64 Year
  Sex: Male

DRUGS (2)
  1. KYPROLIS [Suspect]
     Indication: DRUG USE FOR UNKNOWN INDICATION
     Dosage: (44 mg,2 in 1 wk)
     Route: 042
     Dates: start: 20120926, end: 20121004
  2. MULTAQ (DRONEDARONE HYDROCHLORIDE) (DRONEDARONE HYDROCHLORIDE) [Concomitant]

REACTIONS (5)
  - Anaemia [None]
  - Pleural effusion [None]
  - Lobar pneumonia [None]
  - Hypercalcaemia [None]
  - Cor pulmonale [None]
